FAERS Safety Report 22230353 (Version 2)
Quarter: 2023Q2

REPORT INFORMATION
  Report Type: Spontaneous
  Country: US (occurrence: None)
  Receive Date: 20230419
  Receipt Date: 20230502
  Transmission Date: 20230721
  Serious: Yes (Other)
  Sender: FDA-Public Use
  Company Number: 2023A079966

PATIENT
  Sex: Female
  Weight: 135.2 kg

DRUGS (2)
  1. FARXIGA [Suspect]
     Active Substance: DAPAGLIFLOZIN PROPANEDIOL
     Indication: Chronic kidney disease
     Route: 048
     Dates: start: 202302
  2. FARXIGA [Suspect]
     Active Substance: DAPAGLIFLOZIN PROPANEDIOL
     Indication: Cerebrovascular accident
     Route: 048
     Dates: start: 202302

REACTIONS (4)
  - Glomerular filtration rate decreased [Unknown]
  - Overweight [Unknown]
  - Blood pressure increased [Unknown]
  - Glucose tolerance impaired [Unknown]
